FAERS Safety Report 8758955 (Version 1)
Quarter: 2012Q4

REPORT INFORMATION
  Report Type: Report from Study
  Country: JP (occurrence: JP)
  Receive Date: 20120829
  Receipt Date: 20120829
  Transmission Date: 20130627
  Serious: Yes (Death, Hospitalization)
  Sender: FDA-Public Use
  Company Number: JP-009507513-2008SP025637

PATIENT

DRUGS (19)
  1. TEMOZOLOMIDE [Suspect]
     Indication: GLIOBLASTOMA MULTIFORME
     Dosage: 150 mg/m2, QD
     Route: 048
     Dates: start: 20070214, end: 20070218
  2. TEMOZOLOMIDE [Suspect]
     Dosage: 150 mg/m2, QD
     Route: 048
     Dates: start: 20070316, end: 20070320
  3. TEMOZOLOMIDE [Suspect]
     Dosage: 150 mg/m2, QD
     Route: 048
     Dates: start: 20070416, end: 20070420
  4. TEMOZOLOMIDE [Suspect]
     Dosage: 150 mg/m2, QD
     Route: 048
     Dates: start: 20070618, end: 20070622
  5. TEMOZOLOMIDE [Suspect]
     Dosage: 150 mg/m2, QD
     Route: 048
     Dates: start: 20070727, end: 20070731
  6. TEMOZOLOMIDE [Suspect]
     Dosage: 150 mg/m2, QD
     Route: 048
     Dates: start: 20071010, end: 20071014
  7. TEMOZOLOMIDE [Suspect]
     Dosage: 150 mg/m2, QD
     Route: 048
     Dates: start: 20071121, end: 20071125
  8. TEMOZOLOMIDE [Suspect]
     Dosage: 150 mg/m2, QD
     Route: 048
     Dates: start: 20080130, end: 20080203
  9. SELENICA R [Concomitant]
     Indication: PROPHYLAXIS
     Route: 048
     Dates: start: 20061020, end: 20080326
  10. BLOPRESS [Concomitant]
     Route: 048
     Dates: end: 20080326
  11. NORVASC [Concomitant]
     Route: 048
     Dates: end: 20080326
  12. TENORMIN [Concomitant]
     Route: 048
     Dates: end: 20080326
  13. MAGNESIUM OXIDE [Concomitant]
     Route: 048
     Dates: start: 20061117, end: 20080326
  14. NASEA [Concomitant]
     Indication: PROPHYLAXIS
     Route: 048
     Dates: start: 20061216, end: 20080203
  15. RISPERDAL [Concomitant]
     Indication: RESTLESSNESS
     Route: 048
     Dates: start: 20070910, end: 20080326
  16. CALONAL [Suspect]
     Route: 048
     Dates: start: 20070910
  17. BAKTAR [Suspect]
     Route: 048
  18. GASTER [Concomitant]
     Indication: PROPHYLAXIS
     Dosage: UNK
     Route: 048
     Dates: start: 20061225, end: 20070228
  19. ACIROVEC [Concomitant]
     Indication: PROPHYLAXIS
     Dosage: UNK
     Route: 042
     Dates: start: 20061228, end: 20070103

REACTIONS (12)
  - Gastric ulcer [Recovered/Resolved]
  - Blood albumin decreased [Recovered/Resolved]
  - Red blood cell count decreased [Recovered/Resolved]
  - Haemoglobin decreased [Recovered/Resolved]
  - Haematocrit decreased [Recovered/Resolved]
  - Disease progression [Fatal]
  - Restlessness [Not Recovered/Not Resolved]
  - White blood cell count decreased [Recovered/Resolved]
  - Eosinophil count decreased [Recovered/Resolved]
  - Lymphocyte count decreased [Recovered/Resolved]
  - Constipation [Recovered/Resolved]
  - Bone marrow failure [Recovered/Resolved]
